FAERS Safety Report 7028781-1 (Version None)
Quarter: 2010Q4

REPORT INFORMATION
  Report Type: 
  Country: None (occurrence: None)
  Receive Date: 20101004
  Receipt Date: 20101004
  Transmission Date: 20110411
  Serious: Yes (Hospitalization)
  Sender: FDA-Public Use
  Company Number: None

PATIENT
  Age: 87 Year
  Sex: Female
  Weight: 86 kg

DRUGS (7)
  1. SIMVASTATIN [Suspect]
     Indication: HYPERLIPIDAEMIA
     Dosage: PO (DURATION: A FEW YEARS)
     Route: 048
  2. QUINAPRIL [Concomitant]
  3. SIMVASTATIN [Concomitant]
  4. PLAVIX [Concomitant]
  5. ENABLEX [Concomitant]
  6. FUROSEMIDE [Concomitant]
  7. COSOPT EYE DROPS [Concomitant]

REACTIONS (5)
  - ASTHENIA [None]
  - LIVER FUNCTION TEST ABNORMAL [None]
  - NAUSEA [None]
  - PROTEINURIA [None]
  - RHABDOMYOLYSIS [None]
